FAERS Safety Report 21809407 (Version 1)
Quarter: 2023Q1

REPORT INFORMATION
  Report Type: Spontaneous
  Country: US (occurrence: US)
  Receive Date: 20230103
  Receipt Date: 20230103
  Transmission Date: 20230418
  Serious: No
  Sender: FDA-Public Use
  Company Number: US-BRISTOL-MYERS SQUIBB COMPANY-2023-000573

PATIENT
  Age: 73 Year
  Sex: Male

DRUGS (2)
  1. POMALYST [Suspect]
     Active Substance: POMALIDOMIDE
     Indication: Plasma cell myeloma in remission
     Dosage: FREQUENCY: TAKE 1 CAPSULE (4MG) BY MOUTH ONCE DAILY FOR 14 DAYS ON AND 14 DAYS OFF.
     Route: 048
     Dates: start: 20211221
  2. POMALYST [Suspect]
     Active Substance: POMALIDOMIDE
     Indication: Plasma cell myeloma

REACTIONS (3)
  - Pollakiuria [Unknown]
  - Micturition urgency [Unknown]
  - Off label use [Unknown]
